FAERS Safety Report 10751850 (Version 7)
Quarter: 2016Q3

REPORT INFORMATION
  Report Type: Spontaneous
  Country: US (occurrence: US)
  Receive Date: 20150130
  Receipt Date: 20160822
  Transmission Date: 20161109
  Serious: Yes (Hospitalization, Other)
  Sender: FDA-Public Use
  Company Number: US-PFIZER INC-2015037662

PATIENT
  Age: 80 Year
  Sex: Female
  Weight: 46 kg

DRUGS (13)
  1. ASPIRIN (E.C.) [Concomitant]
     Active Substance: ASPIRIN
     Dosage: 81 MG, 1X/DAY
     Route: 048
  2. PRAVASTATIN SODIUM. [Concomitant]
     Active Substance: PRAVASTATIN SODIUM
     Dosage: 40 MG, 1X/DAY
     Route: 048
  3. ESTRING [Suspect]
     Active Substance: ESTRADIOL
     Indication: VAGINAL INFECTION
     Dosage: 2 MG, EVERY 3 MONTHS
  4. SENTRY [Concomitant]
     Dosage: 1 DF, 1X/DAY
     Route: 048
  5. NYSTATIN. [Concomitant]
     Active Substance: NYSTATIN
     Dosage: 100000 UNIT/GM, AS NEEDED (TWICE A DAY AS NEEDED FOR 30 DAY)
  6. PANTOPRAZOLE SODIUM. [Concomitant]
     Active Substance: PANTOPRAZOLE SODIUM
     Dosage: 20 MG, 1X/DAY (FOR 90 DAYS)
     Route: 048
  7. BLINK TEARS [Concomitant]
     Active Substance: POLYETHYLENE GLYCOL 400
     Dosage: 1 GTT, 2X/DAY
     Route: 047
  8. PRESERVISION AREDS [Concomitant]
     Active Substance: MINERALS\VITAMINS
     Dosage: 1 DF, 2X/DAY
     Route: 048
  9. CALCIUM 600 + D3 PLUS MINERALS [Concomitant]
     Dosage: 1 DF, 1X/DAY
  10. CLOPIDOGREL BISULFATE. [Concomitant]
     Active Substance: CLOPIDOGREL BISULFATE
     Dosage: 75 MG, 1X/DAY
     Route: 048
  11. GARLIC OIL [Concomitant]
     Active Substance: GARLIC OIL
     Dosage: 1000 MG, 1X/DAY
     Route: 048
  12. LEVOTHYROXINE SODIUM. [Concomitant]
     Active Substance: LEVOTHYROXINE SODIUM
     Dosage: 75 UG, 1X/DAY
     Route: 048
  13. VITAMIN D3 [Concomitant]
     Active Substance: CHOLECALCIFEROL
     Dosage: 400 IU, 1X/DAY
     Route: 048

REACTIONS (12)
  - Bladder pain [Unknown]
  - Loss of consciousness [Unknown]
  - Visual acuity reduced [Unknown]
  - Speech disorder [Not Recovered/Not Resolved]
  - Decreased appetite [Not Recovered/Not Resolved]
  - Deafness [Unknown]
  - Weight decreased [Not Recovered/Not Resolved]
  - Rib fracture [Unknown]
  - Product use issue [Unknown]
  - Animal bite [Unknown]
  - Pain [Not Recovered/Not Resolved]
  - Hip fracture [Not Recovered/Not Resolved]

NARRATIVE: CASE EVENT DATE: 2015
